FAERS Safety Report 5290279-9 (Version None)
Quarter: 2007Q2

REPORT INFORMATION
  Report Type: 
  Country: None (occurrence: None)
  Receive Date: 20070406
  Receipt Date: 20070404
  Transmission Date: 20071010
  Serious: Yes (Death)
  Sender: FDA-Public Use
  Company Number: FI-MERCK-0704FIN00003

PATIENT
  Age: 68 Year
  Sex: Male

DRUGS (1)
  1. MEVACOR [Suspect]
     Indication: CORONARY ARTERY DISEASE
     Route: 048
     Dates: start: 19960628, end: 20070228

REACTIONS (1)
  - BLADDER CANCER STAGE III [None]
